FAERS Safety Report 4286784-4 (Version None)
Quarter: 2004Q1

REPORT INFORMATION
  Report Type: 
  Country: None (occurrence: None)
  Receive Date: 20040204
  Receipt Date: 20040122
  Transmission Date: 20041129
  Serious: Yes (Hospitalization, Other)
  Sender: FDA-Public Use
  Company Number: 2003120602

PATIENT
  Age: 87 Year
  Sex: Female

DRUGS (5)
  1. GEODON [Suspect]
     Indication: ABNORMAL BEHAVIOUR
     Dates: start: 20030919
  2. DONEPEZIL HCL [Suspect]
     Indication: DEMENTIA ALZHEIMER'S TYPE
     Dates: start: 20031105
  3. OXAZEPAM [Concomitant]
  4. VALOPROATE SEMISODIUM (VALPROATE SEMISODIUM) [Concomitant]
  5. ALL OTHER THERAPEUTIC PRODUCTS [Concomitant]

REACTIONS (14)
  - ABNORMAL BEHAVIOUR [None]
  - AGITATION [None]
  - APNOEA [None]
  - BLOOD PRESSURE INADEQUATELY CONTROLLED [None]
  - CARDIAC DISORDER [None]
  - CARDIO-RESPIRATORY ARREST [None]
  - CEREBROVASCULAR ACCIDENT [None]
  - EXTRAPYRAMIDAL DISORDER [None]
  - FALL [None]
  - HAEMATOMA [None]
  - HAEMORRHAGIC STROKE [None]
  - MENTAL STATUS CHANGES [None]
  - RESPIRATORY DISORDER [None]
  - URINARY TRACT INFECTION [None]
